FAERS Safety Report 12977960 (Version 1)
Quarter: 2016Q4

REPORT INFORMATION
  Report Type: Spontaneous
  Country: US (occurrence: US)
  Receive Date: 20161128
  Receipt Date: 20161128
  Transmission Date: 20170207
  Serious: No
  Sender: FDA-Public Use
  Company Number: US-BAYER-2016-223546

PATIENT
  Sex: Male

DRUGS (4)
  1. ALEVE [Suspect]
     Active Substance: NAPROXEN SODIUM
     Indication: PAIN
     Dosage: 220 MG, 3-4 AT A TIME, 3-4 TIMES A DAY, BOTTLE COUNT 100S
     Route: 048
     Dates: start: 201509, end: 2015
  2. ADVIL [Concomitant]
     Active Substance: IBUPROFEN
     Dosage: 2 DF, QD
  3. ACTIVATED CHARCOAL [Concomitant]
     Active Substance: ACTIVATED CHARCOAL
     Indication: BACK PAIN
  4. ALEVE [Suspect]
     Active Substance: NAPROXEN SODIUM
     Indication: PAIN
     Dosage: 440 MG, QD
     Route: 048
     Dates: start: 2015, end: 201510

REACTIONS (2)
  - Drug ineffective [Recovering/Resolving]
  - Product use issue [None]

NARRATIVE: CASE EVENT DATE: 201509
